FAERS Safety Report 5054643-5 (Version None)
Quarter: 2006Q2

REPORT INFORMATION
  Report Type: 
  Country: None (occurrence: None)
  Receive Date: 20060614
  Receipt Date: 20060119
  Transmission Date: 20061013
  Serious: No
  Sender: FDA-Public Use
  Company Number: US200601003493

PATIENT
  Age: 81 Year
  Sex: Male

DRUGS (2)
  1. CIALIS [Suspect]
     Indication: ERECTILE DYSFUNCTION
     Dosage: 10 MG, AS NEEDED
     Dates: start: 20060113, end: 20060113
  2. AMARYL [Concomitant]

REACTIONS (2)
  - NAUSEA [None]
  - THROAT IRRITATION [None]
